FAERS Safety Report 21397929 (Version 1)
Quarter: 2022Q3

REPORT INFORMATION
  Report Type: Spontaneous
  Country: CN (occurrence: CN)
  Receive Date: 20220930
  Receipt Date: 20220930
  Transmission Date: 20221027
  Serious: Yes (Other)
  Sender: FDA-Public Use
  Company Number: None

PATIENT
  Age: 12 Year
  Sex: Male
  Weight: 23 kg

DRUGS (8)
  1. CYCLOPHOSPHAMIDE [Suspect]
     Active Substance: CYCLOPHOSPHAMIDE
     Indication: Thalassaemia beta
     Dosage: 1380 MG, QD, VIA INTRA-PUMP INJECTION, DILUTED WITH 0.9% SODIUM CHLORIDE INJECTION 250 ML)
     Route: 050
     Dates: start: 20220902, end: 20220904
  2. SODIUM CHLORIDE [Suspect]
     Active Substance: SODIUM CHLORIDE
     Indication: Medication dilution
     Dosage: 250 ML, QD, VIA INTRA-PUMP INJECTION, DILUTED IN CYCLOPHOSPHAMIDE (1380 MG)
     Route: 050
     Dates: start: 20220902, end: 20220904
  3. SODIUM CHLORIDE [Suspect]
     Active Substance: SODIUM CHLORIDE
     Dosage: 50 ML, QD, VIA INTRA-PUMP INJECTION, DILUTED IN BUSULFAN (360 MG)
     Route: 050
     Dates: start: 20220904, end: 20220910
  4. SODIUM CHLORIDE [Suspect]
     Active Substance: SODIUM CHLORIDE
     Dosage: 100 ML, QD, DILUTED IN FLUDARABINE PHOSPHATE (35.6 MG) (PUMP)
     Route: 041
     Dates: start: 20220904, end: 20220910
  5. SODIUM CHLORIDE [Suspect]
     Active Substance: SODIUM CHLORIDE
     Dosage: 20 ML, QD, DILUTED IN THIOTEPA (230 MG)
     Route: 041
     Dates: start: 20220907, end: 20220907
  6. BUSULFAN [Suspect]
     Active Substance: BUSULFAN
     Indication: Thalassaemia beta
     Dosage: 360 MG, QD, VIA INTRA-PUMP INJECTION, DILUTED WITH 0.9% SODIUM CHLORIDE INJECTION 50 ML
     Route: 050
     Dates: start: 20220904, end: 20220910
  7. FLUDARABINE PHOSPHATE [Suspect]
     Active Substance: FLUDARABINE PHOSPHATE
     Indication: Thalassaemia beta
     Dosage: 35.6 MG, QD, DILUTED WITH 0.9% SODIUM CHLORIDE INJECTION 100 ML, (PUMP)
     Route: 041
     Dates: start: 20220904, end: 20220910
  8. THIOTEPA [Suspect]
     Active Substance: THIOTEPA
     Indication: Thalassaemia beta
     Dosage: 230 MG, QD, DILUTED WITH 0.9% SODIUM CHLORIDE INJECTION 20 ML
     Route: 041
     Dates: start: 20220907, end: 20220907

REACTIONS (1)
  - Myelosuppression [Unknown]

NARRATIVE: CASE EVENT DATE: 20220910
